FAERS Safety Report 21159260 (Version 1)
Quarter: 2022Q3

REPORT INFORMATION
  Report Type: Report from Study
  Country: US (occurrence: US)
  Receive Date: 20220802
  Receipt Date: 20220802
  Transmission Date: 20221027
  Serious: Yes (Other)
  Sender: FDA-Public Use
  Company Number: US-ORG100014127-2021001376

PATIENT
  Age: 61 Year
  Sex: Male

DRUGS (9)
  1. LYSODREN [Suspect]
     Active Substance: MITOTANE
     Indication: Adrenocortical carcinoma
     Dosage: REPORTED AS 06 TABLETS DAILY
     Route: 048
     Dates: start: 20210506
  2. LYSODREN [Suspect]
     Active Substance: MITOTANE
     Indication: Adrenocortical carcinoma
     Route: 048
  3. FLUDROCORT 0.1MG TABLET [Concomitant]
     Indication: Product used for unknown indication
  4. ROSUVASTATIN 5MG TABLET [Concomitant]
     Indication: Product used for unknown indication
  5. HYDROCORT 10, 20 MG TABLET [Concomitant]
     Indication: Product used for unknown indication
  6. LEVOTHYROXINE [Concomitant]
     Active Substance: LEVOTHYROXINE
     Indication: Product used for unknown indication
  7. Rapaflo 8 mg [Concomitant]
     Indication: Product used for unknown indication
  8. Valsartan/HCTZ 160/12.5 mg [Concomitant]
     Indication: Product used for unknown indication
  9. ZOLPIDEM [Concomitant]
     Active Substance: ZOLPIDEM TARTRATE
     Indication: Product used for unknown indication

REACTIONS (6)
  - Weight decreased [Recovered/Resolved]
  - Balance disorder [Recovered/Resolved]
  - Cognitive disorder [Recovered/Resolved]
  - Fatigue [Recovered/Resolved]
  - Nausea [Recovered/Resolved]
  - Hepatic enzyme increased [Unknown]

NARRATIVE: CASE EVENT DATE: 20210728
